FAERS Safety Report 6123287-6 (Version None)
Quarter: 2009Q1

REPORT INFORMATION
  Report Type: 
  Country: None (occurrence: None)
  Receive Date: 20090318
  Receipt Date: 20090306
  Transmission Date: 20090719
  Serious: Yes (Hospitalization)
  Sender: FDA-Public Use
  Company Number: DE-ELI_LILLY_AND_COMPANY-DE200903001906

PATIENT
  Sex: Female
  Weight: 110 kg

DRUGS (8)
  1. BYETTA [Suspect]
     Indication: TYPE 2 DIABETES MELLITUS
     Dosage: 10 UG, 2/D
     Route: 058
     Dates: start: 20080718
  2. GLIMEPIRIDE [Concomitant]
     Dosage: 1 MG, UNK
  3. METFORMIN HCL [Concomitant]
     Dosage: 1000 MG, UNK
  4. DIURSAN [Concomitant]
  5. TORSEMIDE [Concomitant]
  6. EFEROX [Concomitant]
  7. RAMIPRIL [Concomitant]
  8. SOTALOL HYDROCHLORIDE [Concomitant]

REACTIONS (4)
  - BILE DUCT STONE [None]
  - PANCREATITIS [None]
  - SUBILEUS [None]
  - WEIGHT INCREASED [None]
